FAERS Safety Report 13001908 (Version 2)
Quarter: 2016Q4

REPORT INFORMATION
  Report Type: Report from Study
  Country: US (occurrence: US)
  Receive Date: 20161206
  Receipt Date: 20161215
  Transmission Date: 20170207
  Serious: Yes (Death, Hospitalization, Other)
  Sender: FDA-Public Use
  Company Number: US-009507513-1611USA014116

PATIENT
  Age: 74 Year
  Sex: Female

DRUGS (1)
  1. KEYTRUDA [Suspect]
     Active Substance: PEMBROLIZUMAB
     Indication: BREAST CANCER
     Dosage: 1 EVERY 3 WEEKS
     Route: 041

REACTIONS (3)
  - Death [Fatal]
  - Adverse event [Unknown]
  - Product use issue [Unknown]

NARRATIVE: CASE EVENT DATE: 20161210
